FAERS Safety Report 15656126 (Version 2)
Quarter: 2018Q4

REPORT INFORMATION
  Report Type: Report from Study
  Country: US (occurrence: US)
  Receive Date: 20181126
  Receipt Date: 20181218
  Transmission Date: 20190205
  Serious: Yes (Hospitalization, Other)
  Sender: FDA-Public Use
  Company Number: US-PFIZER INC-2018436377

PATIENT
  Age: 70 Year
  Sex: Female

DRUGS (2)
  1. IBRANCE [Suspect]
     Active Substance: PALBOCICLIB
     Indication: BREAST CANCER FEMALE
     Dosage: 125 MG, CYCLIC (21 DAYS ON MEDICATION, 7 DAYS OFF TO MAKE A 28 DAY CYCLE)
     Route: 048
     Dates: start: 20180925, end: 20181206
  2. FEMARA [Concomitant]
     Active Substance: LETROZOLE
     Dosage: UNK UNK, DAILY
     Route: 048

REACTIONS (10)
  - Nausea [Unknown]
  - Tremor [Unknown]
  - Urticaria [Recovered/Resolved]
  - Dyspnoea [Not Recovered/Not Resolved]
  - Decreased appetite [Unknown]
  - Asthenia [Unknown]
  - Renal impairment [Unknown]
  - Fatigue [Unknown]
  - Oxygen saturation decreased [Unknown]
  - Dehydration [Unknown]

NARRATIVE: CASE EVENT DATE: 2018
